FAERS Safety Report 8229631-8 (Version None)
Quarter: 2012Q1

REPORT INFORMATION
  Report Type: 
  Country: None (occurrence: None)
  Receive Date: 20120322
  Receipt Date: 20120316
  Transmission Date: 20120608
  Serious: Yes (Hospitalization)
  Sender: FDA-Public Use
  Company Number: PHHO2011US15234

PATIENT
  Sex: Male
  Weight: 67.9 kg

DRUGS (13)
  1. PROGRAF [Suspect]
     Dosage: 1.5 MG, BID - 2 MG BID
     Route: 048
     Dates: start: 20111218
  2. DAPSONE [Concomitant]
     Indication: ANTIFUNGAL PROPHYLAXIS
     Dosage: 100 MG, QD
     Route: 048
     Dates: start: 20110829
  3. CERTICAN [Suspect]
     Dosage: 1.0 MG, BID
     Route: 048
     Dates: start: 20111006, end: 20111218
  4. VANCOMYCIN [Suspect]
     Dosage: 1000 MG, QD
     Route: 042
     Dates: start: 20110830, end: 20110905
  5. CERTICAN [Suspect]
     Dosage: 1.5 MG, BID
     Route: 048
     Dates: start: 20110901, end: 20111005
  6. PREDNISONE TAB [Concomitant]
     Indication: IMMUNOSUPPRESSION
     Dosage: 5 MG, QD
     Route: 048
     Dates: start: 20110830
  7. VALCYTE [Concomitant]
     Indication: PROPHYLAXIS
     Dosage: 450 MG, QD
     Route: 048
     Dates: start: 20110826
  8. CERTICAN [Suspect]
     Dosage: 1.0 MG, MORNING, 0.5 MG EVENING
     Route: 048
     Dates: start: 20111221, end: 20111221
  9. LEVAQUIN [Suspect]
     Dosage: 500 MG, QD
     Route: 048
     Dates: start: 20110830, end: 20110905
  10. PROGRAF [Suspect]
     Indication: IMMUNOSUPPRESSION
     Dosage: 3 MG, BID
     Route: 048
     Dates: start: 20110830
  11. CERTICAN [Suspect]
     Indication: RENAL TRANSPLANT
     Dosage: 0.75 MG, BID
     Dates: start: 20110825, end: 20110831
  12. CERTICAN [Suspect]
     Dosage: 0.5 MG, BID
     Route: 048
     Dates: start: 20111222, end: 20111223
  13. ASPIRIN [Concomitant]
     Indication: CARDIOVASCULAR EVENT PROPHYLAXIS
     Dosage: 325 MG, QD

REACTIONS (6)
  - FEBRILE NEUTROPENIA [None]
  - PYREXIA [None]
  - RENAL FAILURE ACUTE [None]
  - LUNG INFECTION PSEUDOMONAL [None]
  - CHILLS [None]
  - DYSPNOEA [None]
